FAERS Safety Report 8365857-0 (Version None)
Quarter: 2012Q2

REPORT INFORMATION
  Report Type: 
  Country: None (occurrence: None)
  Receive Date: 20120515
  Receipt Date: 20120504
  Transmission Date: 20120825
  Serious: Yes (Hospitalization, Other)
  Sender: FDA-Public Use
  Company Number: 2010AT000068

PATIENT
  Sex: Male

DRUGS (5)
  1. MARCUMAR [Suspect]
     Indication: ARRHYTHMIA
     Dates: start: 20120101
  2. ANTIHYPERTENSIVES [Concomitant]
  3. ALPROSTADIL [Suspect]
     Indication: PRODUCT USED FOR UNKNOWN INDICATION
     Dosage: 12.5 UG ; 10 UG; 20 UG; 10 UG
     Dates: start: 20020101
  4. CHOLESTEROL- AND TRIGLYCERIDE REDUCERS [Concomitant]
  5. CIPROFLOXACIN [Suspect]
     Indication: PRODUCT USED FOR UNKNOWN INDICATION
     Dates: start: 20120101

REACTIONS (7)
  - ATRIAL FIBRILLATION [None]
  - EXTRASYSTOLES [None]
  - HAEMORRHAGE [None]
  - DRUG INEFFECTIVE [None]
  - PRIAPISM [None]
  - HAEMARTHROSIS [None]
  - OVERDOSE [None]
